FAERS Safety Report 12531362 (Version 2)
Quarter: 2016Q4

REPORT INFORMATION
  Report Type: Report from Study
  Country: US (occurrence: US)
  Receive Date: 20160706
  Receipt Date: 20161005
  Transmission Date: 20170207
  Serious: Yes (Hospitalization)
  Sender: FDA-Public Use
  Company Number: US-BIOGEN-2016BI00260143

PATIENT
  Age: 37 Year
  Sex: Male

DRUGS (1)
  1. TYSABRI [Suspect]
     Active Substance: NATALIZUMAB
     Indication: MULTIPLE SCLEROSIS
     Route: 065
     Dates: start: 20150125, end: 20160515

REACTIONS (2)
  - Brain neoplasm [Not Recovered/Not Resolved]
  - Herpes zoster meningomyelitis [Recovered/Resolved]

NARRATIVE: CASE EVENT DATE: 201605
